FAERS Safety Report 22635460 (Version 1)
Quarter: 2023Q2

REPORT INFORMATION
  Report Type: Report from Study
  Country: US (occurrence: US)
  Receive Date: 20230623
  Receipt Date: 20230623
  Transmission Date: 20230722
  Serious: Yes (Hospitalization, Other)
  Sender: FDA-Public Use
  Company Number: US-BAYER-2023A087495

PATIENT
  Age: 70 Year
  Sex: Male

DRUGS (2)
  1. ASPIRIN [Interacting]
     Active Substance: ASPIRIN
     Dosage: UNK
  2. PRASUGREL [Interacting]
     Active Substance: PRASUGREL

REACTIONS (2)
  - Haematoma [None]
  - Labelled drug-drug interaction medication error [None]
